FAERS Safety Report 9601678 (Version 1)
Quarter: 2013Q4

REPORT INFORMATION
  Report Type: Spontaneous
  Country: US (occurrence: None)
  Receive Date: 20131004
  Receipt Date: 20131004
  Transmission Date: 20140711
  Serious: No
  Sender: FDA-Public Use
  Company Number: None

PATIENT
  Age: 66 Year
  Sex: Male
  Weight: 94.9 kg

DRUGS (1)
  1. HEPARIN [Suspect]
     Route: 042

REACTIONS (3)
  - Product quality issue [None]
  - Therapeutic response unexpected [None]
  - Coagulation time abnormal [None]
